FAERS Safety Report 7132095-9 (Version None)
Quarter: 2010Q4

REPORT INFORMATION
  Report Type: 
  Country: None (occurrence: None)
  Receive Date: 20101124
  Receipt Date: 20101124
  Transmission Date: 20110411
  Serious: No
  Sender: FDA-Public Use
  Company Number: None

PATIENT
  Age: 59 Year
  Sex: Male

DRUGS (1)
  1. COUMADIN [Suspect]
     Dosage: DAILY ORAL (PO)
     Route: 048
     Dates: start: 20101115

REACTIONS (1)
  - RASH [None]
